FAERS Safety Report 19057147 (Version 2)
Quarter: 2021Q3

REPORT INFORMATION
  Report Type: Spontaneous
  Country: CL (occurrence: CL)
  Receive Date: 20210325
  Receipt Date: 20210706
  Transmission Date: 20211014
  Serious: No
  Sender: FDA-Public Use
  Company Number: CL-PFIZER INC-2021284516

PATIENT

DRUGS (1)
  1. SAYANA PRESS [Suspect]
     Active Substance: MEDROXYPROGESTERONE\MEDROXYPROGESTERONE ACETATE
     Dosage: UNK

REACTIONS (1)
  - No adverse event [Unknown]

NARRATIVE: CASE EVENT DATE: 202012
